FAERS Safety Report 7023120-4 (Version None)
Quarter: 2010Q3

REPORT INFORMATION
  Report Type: 
  Country: None (occurrence: None)
  Receive Date: 20100930
  Receipt Date: 20100923
  Transmission Date: 20110219
  Serious: Yes (Death)
  Sender: FDA-Public Use
  Company Number: PHHY2010NL63453

PATIENT
  Sex: Male

DRUGS (2)
  1. ZOMETA [Suspect]
     Indication: PROSTATE CANCER
     Dosage: 4 MG/5ML
     Dates: start: 20091209
  2. ZOMETA [Suspect]
     Dosage: 4 MG/5ML
     Dates: start: 20100826

REACTIONS (3)
  - ILEUS [None]
  - INTESTINAL PERFORATION [None]
  - POST PROCEDURAL COMPLICATION [None]
